FAERS Safety Report 8094789-0 (Version None)
Quarter: 2012Q1

REPORT INFORMATION
  Report Type: 
  Country: None (occurrence: None)
  Receive Date: 20120129
  Receipt Date: 20111215
  Transmission Date: 20120608
  Serious: Yes (Other)
  Sender: FDA-Public Use
  Company Number: US-ABBOTT-11P-163-0882376-00

PATIENT
  Sex: Female

DRUGS (8)
  1. HUMIRA [Suspect]
     Indication: RHEUMATOID ARTHRITIS
     Route: 058
     Dates: start: 20110924
  2. METHOTREXATE [Concomitant]
     Indication: RHEUMATOID ARTHRITIS
     Dosage: WEEKLY
     Route: 048
  3. FOLIC ACID [Concomitant]
     Indication: VITAMIN SUPPLEMENTATION
  4. LOMOTIL [Concomitant]
     Indication: DIARRHOEA
     Dosage: 4-6 PILLS DAILY AS NEEDED
  5. AMBIEN [Concomitant]
     Indication: RESTLESSNESS
  6. FEMHRT [Concomitant]
     Indication: HORMONE REPLACEMENT THERAPY
  7. TEMAZEPAM [Concomitant]
     Indication: ANXIETY
  8. TYLENOL W/ CODEINE NO. 3 [Concomitant]
     Indication: ARTHRALGIA
     Dosage: 1-2 TABS DAILY AS NEEDED

REACTIONS (6)
  - INJECTION SITE RASH [None]
  - INJECTION SITE MASS [None]
  - INJECTION SITE PRURITUS [None]
  - INJECTION SITE VESICLES [None]
  - INJECTION SITE INDURATION [None]
  - SQUAMOUS CELL CARCINOMA OF SKIN [None]
